FAERS Safety Report 4629350-0 (Version None)
Quarter: 2005Q2

REPORT INFORMATION
  Report Type: 
  Country: None (occurrence: None)
  Receive Date: 20050404
  Receipt Date: 20050317
  Transmission Date: 20051028
  Serious: Yes (Hospitalization)
  Sender: FDA-Public Use
  Company Number: B0375277A

PATIENT
  Age: 52 Year
  Sex: Male

DRUGS (2)
  1. PAXIL [Suspect]
     Indication: DEPRESSION
  2. AMITRIPTYLINE HCL [Suspect]
     Indication: DEPRESSION

REACTIONS (12)
  - ASTHENIA [None]
  - CONFUSIONAL STATE [None]
  - CONSTIPATION [None]
  - DEPRESSED LEVEL OF CONSCIOUSNESS [None]
  - DEPRESSION [None]
  - DISORIENTATION [None]
  - DYSURIA [None]
  - HYPERTENSION [None]
  - MEMORY IMPAIRMENT [None]
  - NAUSEA [None]
  - SEROTONIN SYNDROME [None]
  - URINARY RETENTION [None]
